FAERS Safety Report 25266476 (Version 1)
Quarter: 2025Q2

REPORT INFORMATION
  Report Type: Spontaneous
  Country: CN (occurrence: CN)
  Receive Date: 20250505
  Receipt Date: 20250505
  Transmission Date: 20250717
  Serious: Yes (Hospitalization, Other)
  Sender: BEIGENE
  Company Number: CN-BEIGENE-BGN-2025-006771

PATIENT
  Age: 67 Year
  Weight: 60 kg

DRUGS (16)
  1. TISLELIZUMAB [Suspect]
     Active Substance: TISLELIZUMAB
     Indication: Gastric cancer
     Route: 041
  2. TISLELIZUMAB [Suspect]
     Active Substance: TISLELIZUMAB
  3. TISLELIZUMAB [Suspect]
     Active Substance: TISLELIZUMAB
  4. TISLELIZUMAB [Suspect]
     Active Substance: TISLELIZUMAB
     Route: 041
  5. TISLELIZUMAB [Suspect]
     Active Substance: TISLELIZUMAB
     Route: 041
  6. TISLELIZUMAB [Suspect]
     Active Substance: TISLELIZUMAB
  7. TISLELIZUMAB [Suspect]
     Active Substance: TISLELIZUMAB
  8. TISLELIZUMAB [Suspect]
     Active Substance: TISLELIZUMAB
     Route: 041
  9. OXALIPLATIN [Suspect]
     Active Substance: OXALIPLATIN
     Indication: Gastric cancer
  10. OXALIPLATIN [Suspect]
     Active Substance: OXALIPLATIN
     Route: 041
  11. OXALIPLATIN [Suspect]
     Active Substance: OXALIPLATIN
  12. OXALIPLATIN [Suspect]
     Active Substance: OXALIPLATIN
     Route: 041
  13. FLUOROURACIL [Suspect]
     Active Substance: FLUOROURACIL
     Indication: Gastric cancer
  14. FLUOROURACIL [Suspect]
     Active Substance: FLUOROURACIL
     Route: 042
  15. FLUOROURACIL [Suspect]
     Active Substance: FLUOROURACIL
  16. FLUOROURACIL [Suspect]
     Active Substance: FLUOROURACIL
     Route: 042

REACTIONS (2)
  - Acute kidney injury [Recovering/Resolving]
  - Immune-mediated nephritis [Unknown]
